FAERS Safety Report 8330242-4 (Version None)
Quarter: 2012Q2

REPORT INFORMATION
  Report Type: 
  Country: None (occurrence: None)
  Receive Date: 20120430
  Receipt Date: 20120423
  Transmission Date: 20120825
  Serious: No
  Sender: FDA-Public Use
  Company Number: 2012SP015664

PATIENT
  Sex: Male

DRUGS (3)
  1. VICTRELIS [Suspect]
     Indication: HEPATITIS C
     Dosage: 800 MG;TID;PO
     Route: 048
  2. RIBAVIRIN [Suspect]
     Indication: HEPATITIS C
  3. PEG-INTERFERON (PEGINTERFERON ALFA-2B /01543001/) [Suspect]
     Indication: HEPATITIS C

REACTIONS (1)
  - NO ADVERSE EVENT [None]
